FAERS Safety Report 8070626-5 (Version None)
Quarter: 2012Q1

REPORT INFORMATION
  Report Type: 
  Country: None (occurrence: None)
  Receive Date: 20120125
  Receipt Date: 20120117
  Transmission Date: 20120608
  Serious: Yes (Hospitalization)
  Sender: FDA-Public Use
  Company Number: PHHY2012AR004346

PATIENT
  Sex: Female

DRUGS (1)
  1. TRILEPTAL [Suspect]
     Indication: CONVULSION
     Dosage: 4 DF, DAILY
     Dates: end: 20111201

REACTIONS (6)
  - SEPSIS [None]
  - URINARY TRACT INFECTION [None]
  - HEMIPLEGIA [None]
  - HAEMORRHAGE [None]
  - CEREBROVASCULAR ACCIDENT [None]
  - TYPE 1 DIABETES MELLITUS [None]
